FAERS Safety Report 23150542 (Version 1)
Quarter: 2023Q4

REPORT INFORMATION
  Report Type: Report from Study
  Country: US (occurrence: US)
  Receive Date: 20231106
  Receipt Date: 20231106
  Transmission Date: 20240110
  Serious: Yes (Other)
  Sender: FDA-Public Use
  Company Number: US-ABBVIE-5477320

PATIENT
  Sex: Male

DRUGS (1)
  1. RINVOQ [Suspect]
     Active Substance: UPADACITINIB
     Indication: Rheumatoid arthritis
     Route: 048
     Dates: start: 20230719

REACTIONS (8)
  - Medical device implantation [Unknown]
  - Fall [Recovering/Resolving]
  - Headache [Not Recovered/Not Resolved]
  - Arthralgia [Not Recovered/Not Resolved]
  - Back pain [Not Recovered/Not Resolved]
  - Neuropathy peripheral [Unknown]
  - Neck pain [Unknown]
  - Trigeminal neuralgia [Unknown]

NARRATIVE: CASE EVENT DATE: 20230101
